FAERS Safety Report 5796591-9 (Version None)
Quarter: 2008Q2

REPORT INFORMATION
  Report Type: 
  Country: None (occurrence: None)
  Receive Date: 20080630
  Receipt Date: 20080630
  Transmission Date: 20081010
  Serious: No
  Sender: FDA-Public Use
  Company Number: None

PATIENT
  Age: 25 Year
  Sex: Female
  Weight: 56.6996 kg

DRUGS (1)
  1. NUVARING [Suspect]
     Indication: CONTRACEPTION
     Dosage: 0.120MG/0.015MG PER DAY VAG
     Route: 067
     Dates: start: 20080101

REACTIONS (7)
  - ANGER [None]
  - CRYING [None]
  - DEPRESSION [None]
  - MOOD SWINGS [None]
  - VULVOVAGINAL BURNING SENSATION [None]
  - VULVOVAGINAL DISCOMFORT [None]
  - VULVOVAGINAL PRURITUS [None]
